FAERS Safety Report 19303935 (Version 1)
Quarter: 2021Q2

REPORT INFORMATION
  Report Type: Spontaneous
  Country: US (occurrence: US)
  Receive Date: 20210525
  Receipt Date: 20210525
  Transmission Date: 20210717
  Serious: No
  Sender: FDA-Public Use
  Company Number: US-ROMARKLABS-2021-US-000020

PATIENT
  Age: 50 Year
  Sex: Female

DRUGS (1)
  1. ALINIA [Suspect]
     Active Substance: NITAZOXANIDE
     Indication: INFECTION PARASITIC
     Dosage: TAKE 2 TABLETS BY MOUTH 2 TIMES DAILY
     Route: 048
     Dates: start: 202103

REACTIONS (2)
  - Myalgia [Unknown]
  - Inflammation [Unknown]

NARRATIVE: CASE EVENT DATE: 202103
